FAERS Safety Report 9139246 (Version 1)
Quarter: 2013Q1

REPORT INFORMATION
  Report Type: Spontaneous
  Country: BR (occurrence: BR)
  Receive Date: 20130305
  Receipt Date: 20130305
  Transmission Date: 20140127
  Serious: Yes (Other)
  Sender: FDA-Public Use
  Company Number: PHHY2012BR069261

PATIENT
  Age: 7 Year
  Sex: Male

DRUGS (4)
  1. TEGRETOL [Suspect]
     Indication: EPILEPSY
     Dosage: 2.5 ML, BID (IN THE MORNING AND AT NIGHT)
     Route: 048
     Dates: start: 201204
  2. TEGRETOL [Suspect]
     Dosage: 7 ML, (03 ML IN THE MORNING AND 04 ML AT NIGHT)
     Route: 048
     Dates: end: 2012
  3. DESELEX [Concomitant]
     Indication: REACTION TO COLOURING
  4. PREDSIM [Concomitant]
     Indication: HYPERSENSITIVITY
     Route: 048

REACTIONS (7)
  - Hypersensitivity [Recovered/Resolved]
  - Mass [Recovered/Resolved]
  - Urticaria [Recovered/Resolved]
  - Swelling [Recovered/Resolved]
  - Limb injury [Recovered/Resolved]
  - Sleep disorder [Unknown]
  - Attention deficit/hyperactivity disorder [Unknown]
